FAERS Safety Report 25990325 (Version 2)
Quarter: 2025Q4

REPORT INFORMATION
  Report Type: Spontaneous
  Country: US (occurrence: US)
  Receive Date: 20251103
  Receipt Date: 20251106
  Transmission Date: 20260118
  Serious: Yes (Death)
  Sender: PFIZER
  Company Number: US-PFIZER INC-202500212893

PATIENT
  Age: 93 Year
  Sex: Female

DRUGS (2)
  1. IBRANCE [Suspect]
     Active Substance: PALBOCICLIB
     Indication: Breast cancer metastatic
     Dosage: UNK, CYCLIC (3 WEEKS ON AND 1 WEEK OFF)
  2. IBRANCE [Suspect]
     Active Substance: PALBOCICLIB
     Dosage: 75 MG, CYCLIC (2 WEEKS ON AND 1 WEEK OFF)
     Route: 048

REACTIONS (2)
  - Pancreatic carcinoma [Fatal]
  - Second primary malignancy [Fatal]
